FAERS Safety Report 8512278-3 (Version None)
Quarter: 2012Q3

REPORT INFORMATION
  Report Type: 
  Country: None (occurrence: None)
  Receive Date: 20120716
  Receipt Date: 20120706
  Transmission Date: 20120928
  Serious: Yes (Other)
  Sender: FDA-Public Use
  Company Number: US-AMGEN-USASP2011018088

PATIENT
  Age: 70 Year
  Sex: Female

DRUGS (2)
  1. ENBREL [Suspect]
     Indication: RHEUMATOID ARTHRITIS
     Dosage: 50 MG, QWK
     Dates: start: 19990101
  2. DIGOXIN [Concomitant]
     Dosage: UNK

REACTIONS (5)
  - TOXICITY TO VARIOUS AGENTS [None]
  - MUSCULAR WEAKNESS [None]
  - DIZZINESS [None]
  - ATRIAL FIBRILLATION [None]
  - NAUSEA [None]
